FAERS Safety Report 14920800 (Version 1)
Quarter: 2018Q2

REPORT INFORMATION
  Report Type: Spontaneous
  Country: US (occurrence: US)
  Receive Date: 20180521
  Receipt Date: 20180521
  Transmission Date: 20180711
  Serious: Yes (Other)
  Sender: FDA-Public Use
  Company Number: US-MYLANLABS-2018M1032848

PATIENT
  Age: 43 Year
  Sex: Female

DRUGS (2)
  1. PACLITAXEL. [Suspect]
     Active Substance: PACLITAXEL
     Indication: OVARIAN EPITHELIAL CANCER STAGE III
     Dosage: DOSE-DENSE PACLITAXEL CHEMOTHERAPY
     Route: 065
  2. CARBOPLATIN. [Suspect]
     Active Substance: CARBOPLATIN
     Indication: OVARIAN EPITHELIAL CANCER STAGE III
     Dosage: DOSE-DENSE CARBOPLATIN CHEMOTHERAPY
     Route: 065

REACTIONS (1)
  - Pseudocirrhosis [Unknown]
